FAERS Safety Report 14784857 (Version 2)
Quarter: 2018Q3

REPORT INFORMATION
  Report Type: Spontaneous
  Country: FR (occurrence: FR)
  Receive Date: 20180420
  Receipt Date: 20180810
  Transmission Date: 20181010
  Serious: Yes (Hospitalization, Other)
  Sender: FDA-Public Use
  Company Number: PHHY2018FR068118

PATIENT
  Age: 11 Day
  Sex: Female
  Weight: 2.8 kg

DRUGS (11)
  1. OMEPRAZOLE. [Concomitant]
     Active Substance: OMEPRAZOLE
     Indication: PRODUCT USED FOR UNKNOWN INDICATION
     Dosage: UNK
     Route: 065
  2. SUFENTANIL [Concomitant]
     Active Substance: SUFENTANIL
     Indication: PRODUCT USED FOR UNKNOWN INDICATION
     Dosage: UNK
     Route: 065
  3. HEPARIN [Concomitant]
     Active Substance: HEPARIN SODIUM
     Indication: PRODUCT USED FOR UNKNOWN INDICATION
     Dosage: UNK
     Route: 065
  4. MIDAZOLAM [Concomitant]
     Active Substance: MIDAZOLAM HYDROCHLORIDE
     Indication: PRODUCT USED FOR UNKNOWN INDICATION
     Dosage: UNK
     Route: 065
  5. NIMBEX [Concomitant]
     Active Substance: CISATRACURIUM BESYLATE
     Indication: PRODUCT USED FOR UNKNOWN INDICATION
     Dosage: UNK
     Route: 065
  6. ADRENALINE [Concomitant]
     Active Substance: EPINEPHRINE
     Indication: PRODUCT USED FOR UNKNOWN INDICATION
     Dosage: UNK
     Route: 065
  7. FUROSEMIDE. [Concomitant]
     Active Substance: FUROSEMIDE
     Indication: PRODUCT USED FOR UNKNOWN INDICATION
     Dosage: UNK
     Route: 065
  8. SOLUDACTONE [Concomitant]
     Active Substance: CANRENOATE POTASSIUM\TROMETHAMINE
     Indication: PRODUCT USED FOR UNKNOWN INDICATION
     Dosage: UNK
     Route: 065
  9. VANCOMYCIN SANDOZ [Suspect]
     Active Substance: VANCOMYCIN
     Indication: SEPTIC SHOCK
     Dosage: 140 MG, QD
     Route: 041
     Dates: start: 20170611, end: 20170613
  10. TIENAM [Concomitant]
     Active Substance: CILASTATIN SODIUM\IMIPENEM
     Indication: SEPTIC SHOCK
     Dosage: 140 MG, QD
     Route: 041
     Dates: start: 20170611
  11. PARACETAMOL [Concomitant]
     Active Substance: ACETAMINOPHEN
     Indication: PRODUCT USED FOR UNKNOWN INDICATION
     Dosage: UNK
     Route: 065

REACTIONS (3)
  - Condition aggravated [Recovered/Resolved]
  - Acute kidney injury [Recovered/Resolved]
  - Drug level increased [Recovered/Resolved]

NARRATIVE: CASE EVENT DATE: 20170611
